FAERS Safety Report 15682639 (Version 3)
Quarter: 2019Q1

REPORT INFORMATION
  Report Type: Spontaneous
  Country: US (occurrence: US)
  Receive Date: 20181203
  Receipt Date: 20190122
  Transmission Date: 20190417
  Serious: No
  Sender: FDA-Public Use
  Company Number: US-BAUSCH-BL-2018-033551

PATIENT
  Age: 63 Year
  Sex: Female
  Weight: 81.27 kg

DRUGS (1)
  1. PLENVU [Suspect]
     Active Substance: ASCORBIC ACID\POLYETHYLENE GLYCOL 3350\POTASSIUM CHLORIDE\SODIUM ASCORBATE\SODIUM CHLORIDE\SODIUM SULFATE
     Indication: BOWEL PREPARATION
     Dosage: SPLIT DOSE AS DIRECTED
     Route: 048
     Dates: start: 20181119, end: 20181120

REACTIONS (4)
  - Vomiting [Recovered/Resolved]
  - Product use complaint [Recovered/Resolved]
  - Anal incontinence [Recovered/Resolved]
  - Product taste abnormal [Recovered/Resolved]

NARRATIVE: CASE EVENT DATE: 20181119
